FAERS Safety Report 9919344 (Version 1)
Quarter: 2014Q1

REPORT INFORMATION
  Report Type: Spontaneous
  Country: AR (occurrence: AR)
  Receive Date: 20140224
  Receipt Date: 20140224
  Transmission Date: 20141002
  Serious: Yes (Other)
  Sender: FDA-Public Use
  Company Number: AR-PFIZER INC-2014050952

PATIENT
  Age: 51 Year
  Sex: Female

DRUGS (1)
  1. GENOTROPIN [Suspect]
     Indication: BLOOD GROWTH HORMONE DECREASED
     Dosage: 0,1 TO 0,5 MG 1X/DAY
     Dates: start: 20060102

REACTIONS (2)
  - Abdominal strangulated hernia [Recovered/Resolved]
  - Alopecia [Not Recovered/Not Resolved]
